FAERS Safety Report 25472898 (Version 1)
Quarter: 2025Q2

REPORT INFORMATION
  Report Type: Other
  Country: CA (occurrence: CA)
  Receive Date: 20250624
  Receipt Date: 20250624
  Transmission Date: 20250716
  Serious: Yes (Death, Life-Threatening, Hospitalization, Disabling, Other)
  Sender: BIOCON
  Company Number: CA-BIOCON BIOLOGICS LIMITED-BBL2025003216

PATIENT

DRUGS (93)
  1. ADALIMUMAB [Suspect]
     Active Substance: ADALIMUMAB
     Indication: Rheumatoid arthritis
     Route: 058
  2. ADALIMUMAB [Suspect]
     Active Substance: ADALIMUMAB
     Route: 058
  3. ADALIMUMAB [Suspect]
     Active Substance: ADALIMUMAB
     Route: 058
  4. ADALIMUMAB [Suspect]
     Active Substance: ADALIMUMAB
     Route: 058
  5. ADALIMUMAB [Suspect]
     Active Substance: ADALIMUMAB
     Route: 048
  6. ADALIMUMAB [Suspect]
     Active Substance: ADALIMUMAB
     Route: 065
  7. ADALIMUMAB [Suspect]
     Active Substance: ADALIMUMAB
     Route: 058
  8. DESOGESTREL\ETHINYL ESTRADIOL [Suspect]
     Active Substance: DESOGESTREL\ETHINYL ESTRADIOL
     Indication: Product used for unknown indication
     Route: 065
  9. HYRIMOZ [Suspect]
     Active Substance: ADALIMUMAB-ADAZ
     Indication: Rheumatoid arthritis
     Route: 065
  10. OXYCODONE [Suspect]
     Active Substance: OXYCODONE
     Indication: Product used for unknown indication
     Route: 065
  11. OXYCODONE [Suspect]
     Active Substance: OXYCODONE
     Route: 065
  12. FOLIC ACID [Suspect]
     Active Substance: FOLIC ACID
     Indication: Rheumatoid arthritis
     Route: 048
  13. FOLIC ACID [Suspect]
     Active Substance: FOLIC ACID
     Indication: Rheumatoid arthritis
     Route: 048
  14. FOLIC ACID [Suspect]
     Active Substance: FOLIC ACID
     Route: 065
  15. FOLIC ACID [Suspect]
     Active Substance: FOLIC ACID
     Route: 065
  16. FOLIC ACID [Suspect]
     Active Substance: FOLIC ACID
     Route: 065
  17. FOLIC ACID [Suspect]
     Active Substance: FOLIC ACID
     Route: 065
  18. FOLIC ACID [Suspect]
     Active Substance: FOLIC ACID
     Route: 048
  19. FOLIC ACID [Suspect]
     Active Substance: FOLIC ACID
     Route: 065
  20. FOLIC ACID [Suspect]
     Active Substance: FOLIC ACID
     Route: 065
  21. FOLIC ACID [Suspect]
     Active Substance: FOLIC ACID
     Route: 048
  22. FOLIC ACID [Suspect]
     Active Substance: FOLIC ACID
     Route: 048
  23. FOLIC ACID [Suspect]
     Active Substance: FOLIC ACID
     Route: 065
  24. FOLIC ACID [Suspect]
     Active Substance: FOLIC ACID
     Route: 058
  25. FOLIC ACID [Suspect]
     Active Substance: FOLIC ACID
     Route: 065
  26. FOLIC ACID [Suspect]
     Active Substance: FOLIC ACID
     Route: 065
  27. FOLIC ACID [Suspect]
     Active Substance: FOLIC ACID
     Route: 048
  28. FOLIC ACID [Suspect]
     Active Substance: FOLIC ACID
     Route: 048
  29. FOLIC ACID [Suspect]
     Active Substance: FOLIC ACID
     Route: 058
  30. AZULFIDINE [Suspect]
     Active Substance: SULFASALAZINE
     Indication: Product used for unknown indication
     Route: 065
  31. SULFASALAZINE [Suspect]
     Active Substance: SULFASALAZINE
     Indication: Product used for unknown indication
     Route: 065
  32. CLIOQUINOL\HYDROCORTISONE [Suspect]
     Active Substance: CLIOQUINOL\HYDROCORTISONE
     Indication: Product used for unknown indication
     Route: 065
  33. SULFAMETHOXAZOLE [Suspect]
     Active Substance: SULFAMETHOXAZOLE
     Indication: Product used for unknown indication
     Route: 065
  34. ACETAMINOPHEN AND CODEINE [Suspect]
     Active Substance: ACETAMINOPHEN\CODEINE PHOSPHATE
     Indication: Product used for unknown indication
     Route: 065
  35. SULFATHIAZOLE [Suspect]
     Active Substance: SULFATHIAZOLE
     Indication: Product used for unknown indication
     Route: 065
  36. DICLOFENAC SODIUM [Suspect]
     Active Substance: DICLOFENAC SODIUM
     Indication: Product used for unknown indication
     Route: 065
  37. DICLOFENAC SODIUM [Suspect]
     Active Substance: DICLOFENAC SODIUM
     Route: 058
  38. DICLOFENAC SODIUM [Suspect]
     Active Substance: DICLOFENAC SODIUM
     Route: 065
  39. ERELZI [Suspect]
     Active Substance: ETANERCEPT-SZZS
     Indication: Rheumatoid arthritis
     Dosage: 20 MILLIGRAM, QWEEK
     Route: 058
  40. ERELZI [Suspect]
     Active Substance: ETANERCEPT-SZZS
     Dosage: 50 MILLIGRAM, QWEEK
     Route: 058
  41. ERELZI [Suspect]
     Active Substance: ETANERCEPT-SZZS
     Route: 058
  42. ERELZI [Suspect]
     Active Substance: ETANERCEPT-SZZS
     Dosage: 50 MILLIGRAM, QWEEK
     Route: 058
  43. COSENTYX [Suspect]
     Active Substance: SECUKINUMAB
     Indication: Psoriatic arthropathy
     Route: 065
  44. METHOTREXATE [Suspect]
     Active Substance: METHOTREXATE
     Indication: Rheumatoid arthritis
     Route: 048
  45. METHOTREXATE [Suspect]
     Active Substance: METHOTREXATE
     Dosage: 25 MILLIGRAM, QD
     Route: 065
  46. METHOTREXATE [Suspect]
     Active Substance: METHOTREXATE
     Dosage: 15 MILLIGRAM, QD
     Route: 065
  47. METHOTREXATE [Suspect]
     Active Substance: METHOTREXATE
     Dosage: 20 MILLIGRAM, QD
     Route: 048
  48. METHOTREXATE [Suspect]
     Active Substance: METHOTREXATE
     Dosage: 20 MILLIGRAM, Q24H
     Route: 048
  49. METHOTREXATE [Suspect]
     Active Substance: METHOTREXATE
     Route: 058
  50. METHOTREXATE [Suspect]
     Active Substance: METHOTREXATE
     Dosage: 1 MILLIGRAM, QD
     Route: 065
  51. METHOTREXATE [Suspect]
     Active Substance: METHOTREXATE
     Dosage: 20 MILLIGRAM, QWEEK
     Route: 048
  52. METHOTREXATE [Suspect]
     Active Substance: METHOTREXATE
     Dosage: 1 DOSAGE FORM, Q24H
     Route: 048
  53. METHOTREXATE [Suspect]
     Active Substance: METHOTREXATE
     Route: 048
  54. METHOTREXATE [Suspect]
     Active Substance: METHOTREXATE
     Dosage: 15 MILLIGRAM, Q24H
     Route: 048
  55. METHOTREXATE [Suspect]
     Active Substance: METHOTREXATE
     Dosage: 1 GRAM, Q24H
     Route: 048
  56. METHOTREXATE [Suspect]
     Active Substance: METHOTREXATE
     Route: 048
  57. METHOTREXATE [Suspect]
     Active Substance: METHOTREXATE
     Route: 048
  58. METHOTREXATE [Suspect]
     Active Substance: METHOTREXATE
     Dosage: 2 GRAM, QD
     Route: 048
  59. METHOTREXATE [Suspect]
     Active Substance: METHOTREXATE
     Dosage: 50 MILLIGRAM, QWEEK
     Route: 013
  60. METHOTREXATE [Suspect]
     Active Substance: METHOTREXATE
     Route: 065
  61. METHOTREXATE [Suspect]
     Active Substance: METHOTREXATE
     Route: 051
  62. METHOTREXATE [Suspect]
     Active Substance: METHOTREXATE
     Dosage: 2 DOSAGE FORM, Q24H
     Route: 048
  63. METHOTREXATE [Suspect]
     Active Substance: METHOTREXATE
     Route: 065
  64. METHOTREXATE [Suspect]
     Active Substance: METHOTREXATE
     Dosage: 25 MILLIGRAM, QWEEK
     Route: 048
  65. METHOTREXATE [Suspect]
     Active Substance: METHOTREXATE
     Dosage: 25 MILLIGRAM, QWEEK
     Route: 048
  66. METHOTREXATE [Suspect]
     Active Substance: METHOTREXATE
     Dosage: 20 MILLIGRAM, QD
     Route: 048
  67. METHOTREXATE [Suspect]
     Active Substance: METHOTREXATE
     Route: 051
  68. METHOTREXATE [Suspect]
     Active Substance: METHOTREXATE
     Dosage: 25 MILLIGRAM, QWEEK
     Route: 058
  69. METHOTREXATE [Suspect]
     Active Substance: METHOTREXATE
     Route: 048
  70. METHOTREXATE [Suspect]
     Active Substance: METHOTREXATE
     Route: 065
  71. METHOTREXATE [Suspect]
     Active Substance: METHOTREXATE
     Route: 048
  72. METHOTREXATE [Suspect]
     Active Substance: METHOTREXATE
     Route: 013
  73. METHOTREXATE [Suspect]
     Active Substance: METHOTREXATE
     Route: 016
  74. MYCOPHENOLATE MOFETIL [Suspect]
     Active Substance: MYCOPHENOLATE MOFETIL
     Indication: Product used for unknown indication
     Route: 065
  75. RITUXIMAB [Suspect]
     Active Substance: RITUXIMAB
     Indication: Rheumatoid arthritis
     Route: 042
  76. RITUXIMAB [Suspect]
     Active Substance: RITUXIMAB
     Route: 042
  77. RITUXIMAB [Suspect]
     Active Substance: RITUXIMAB
     Route: 042
  78. RITUXIMAB [Suspect]
     Active Substance: RITUXIMAB
     Route: 058
  79. RITUXIMAB [Suspect]
     Active Substance: RITUXIMAB
     Route: 065
  80. RITUXIMAB [Suspect]
     Active Substance: RITUXIMAB
     Route: 043
  81. RITUXIMAB [Suspect]
     Active Substance: RITUXIMAB
     Route: 042
  82. RITUXIMAB [Suspect]
     Active Substance: RITUXIMAB
     Route: 065
  83. RITUXIMAB [Suspect]
     Active Substance: RITUXIMAB
     Route: 016
  84. METHOTREXATE [Suspect]
     Active Substance: METHOTREXATE
     Indication: Rheumatoid arthritis
     Route: 058
  85. APREPITANT [Suspect]
     Active Substance: APREPITANT
     Indication: Product used for unknown indication
     Route: 065
  86. VITAMIN C [Suspect]
     Active Substance: ASCORBIC ACID
     Indication: Product used for unknown indication
     Route: 065
  87. CALCIUM CARBONATE\CHOLECALCIFEROL [Suspect]
     Active Substance: CALCIUM CARBONATE\CHOLECALCIFEROL
     Indication: Product used for unknown indication
     Route: 065
  88. LISINOPRIL [Concomitant]
     Active Substance: LISINOPRIL
     Indication: Product used for unknown indication
     Route: 065
  89. ACETAMINOPHEN\CAFFEINE\CODEINE PHOSPHATE [Concomitant]
     Active Substance: ACETAMINOPHEN\CAFFEINE\CODEINE PHOSPHATE
     Indication: Product used for unknown indication
     Route: 065
  90. DESOGESTREL\ETHINYL ESTRADIOL [Concomitant]
     Active Substance: DESOGESTREL\ETHINYL ESTRADIOL
     Indication: Product used for unknown indication
     Route: 065
  91. ALBUTEROL SULFATE [Concomitant]
     Active Substance: ALBUTEROL SULFATE
     Indication: Product used for unknown indication
     Route: 065
  92. TYLENOL [Concomitant]
     Active Substance: ACETAMINOPHEN
     Indication: Product used for unknown indication
     Route: 065
  93. ZOPICLONE [Concomitant]
     Active Substance: ZOPICLONE
     Indication: Product used for unknown indication
     Route: 065

REACTIONS (29)
  - Tachycardia [Fatal]
  - Retinitis [Fatal]
  - Visual impairment [Fatal]
  - Bronchitis [Fatal]
  - Drug-induced liver injury [Fatal]
  - Osteoporosis [Fatal]
  - Exostosis [Fatal]
  - Ulcer haemorrhage [Fatal]
  - Lupus vulgaris [Fatal]
  - Bursitis [Fatal]
  - Laryngitis [Fatal]
  - Feeling hot [Fatal]
  - Lupus-like syndrome [Fatal]
  - C-reactive protein abnormal [Fatal]
  - Frequent bowel movements [Fatal]
  - Crohn^s disease [Fatal]
  - Red blood cell sedimentation rate increased [Fatal]
  - Ear pain [Fatal]
  - Hepatic cirrhosis [Fatal]
  - Bone erosion [Fatal]
  - Joint stiffness [Fatal]
  - Therapy non-responder [Fatal]
  - Maternal exposure timing unspecified [Fatal]
  - Exposure during pregnancy [Fatal]
  - Pregnancy [Fatal]
  - Ear infection [Fatal]
  - Upper respiratory tract infection [Fatal]
  - Medication error [Fatal]
  - Prescribed overdose [Fatal]
